FAERS Safety Report 21348884 (Version 2)
Quarter: 2022Q4

REPORT INFORMATION
  Report Type: Spontaneous
  Country: ES (occurrence: ES)
  Receive Date: 20220919
  Receipt Date: 20221010
  Transmission Date: 20230113
  Serious: Yes (Other)
  Sender: FDA-Public Use
  Company Number: ES-KOREA IPSEN Pharma-2022-26015

PATIENT
  Age: 77 Year
  Sex: Male
  Weight: 50 kg

DRUGS (8)
  1. LANREOTIDE ACETATE [Suspect]
     Active Substance: LANREOTIDE ACETATE
     Indication: Neuroendocrine tumour
     Route: 058
     Dates: start: 2016
  2. RANEXA [Concomitant]
     Active Substance: RANOLAZINE
  3. ATORVASTATIN [Concomitant]
     Active Substance: ATORVASTATIN
  4. DUTASTERIDE\TAMSULOSIN [Concomitant]
     Active Substance: DUTASTERIDE\TAMSULOSIN
  5. CREON [Concomitant]
     Active Substance: PANCRELIPASE AMYLASE\PANCRELIPASE LIPASE\PANCRELIPASE PROTEASE
  6. PANTOPRAZOLE SODIUM [Concomitant]
     Active Substance: PANTOPRAZOLE SODIUM
  7. NITROGEN PATCHES [Concomitant]
  8. SALICYL ACETYL [Concomitant]

REACTIONS (7)
  - Myocardial infarction [Unknown]
  - Injection site swelling [Unknown]
  - Injection site fibrosis [Unknown]
  - Underweight [Unknown]
  - Benign prostatic hyperplasia [Unknown]
  - Copper deficiency [Unknown]
  - Wrong technique in product usage process [Unknown]

NARRATIVE: CASE EVENT DATE: 20220901
